FAERS Safety Report 7944061-1 (Version None)
Quarter: 2011Q4

REPORT INFORMATION
  Report Type: 
  Country: None (occurrence: None)
  Receive Date: 20111128
  Receipt Date: 20111115
  Transmission Date: 20120403
  Serious: Yes (Disabling)
  Sender: FDA-Public Use
  Company Number: CA-ASTRAZENECA-2011SE69082

PATIENT
  Age: 54 Year
  Sex: Female
  Weight: 92.5 kg

DRUGS (5)
  1. HYDROCHLOROTHIAZIDE [Concomitant]
  2. ARIMIDEX [Suspect]
     Route: 048
  3. CARBOCAL D [Concomitant]
  4. GLUCOSAMINE [Concomitant]
  5. SANDOZ BUPROPION SR [Concomitant]

REACTIONS (3)
  - DYSSTASIA [None]
  - GAIT DISTURBANCE [None]
  - MUSCULAR WEAKNESS [None]
